FAERS Safety Report 15507531 (Version 2)
Quarter: 2018Q4

REPORT INFORMATION
  Report Type: Spontaneous
  Country: BG (occurrence: BG)
  Receive Date: 20181016
  Receipt Date: 20181105
  Transmission Date: 20190205
  Serious: Yes (Other)
  Sender: FDA-Public Use
  Company Number: BG-TEVA-2018-BG-962295

PATIENT
  Age: 38 Year
  Sex: Male

DRUGS (1)
  1. OXALIPLATIN. [Suspect]
     Active Substance: OXALIPLATIN
     Route: 065

REACTIONS (3)
  - Sarcoidosis [Recovered/Resolved]
  - Lymphangiosis carcinomatosa [Unknown]
  - Skin lesion [Unknown]
